FAERS Safety Report 8313234-0 (Version None)
Quarter: 2012Q2

REPORT INFORMATION
  Report Type: 
  Country: None (occurrence: None)
  Receive Date: 20120426
  Receipt Date: 20120417
  Transmission Date: 20120825
  Serious: Yes (Other)
  Sender: FDA-Public Use
  Company Number: CA-ABBOTT-12P-028-0916539-00

PATIENT
  Sex: Female
  Weight: 56.75 kg

DRUGS (5)
  1. HUMIRA [Suspect]
     Indication: PSORIATIC ARTHROPATHY
     Route: 058
     Dates: start: 20110510, end: 20111101
  2. SIMVASTATIN [Concomitant]
     Indication: ARTHRALGIA
     Route: 048
  3. HUMIRA [Suspect]
     Route: 058
     Dates: start: 20120212
  4. MS CONTIN [Concomitant]
     Indication: ARTHRALGIA
     Route: 048
  5. TOPAMAX [Concomitant]
     Indication: ARTHRALGIA
     Route: 048

REACTIONS (6)
  - ABASIA [None]
  - ARTHRITIS [None]
  - FALL [None]
  - LIGAMENT RUPTURE [None]
  - BLISTER [None]
  - PSORIASIS [None]
